FAERS Safety Report 4995511-4 (Version None)
Quarter: 2006Q2

REPORT INFORMATION
  Report Type: 
  Country: None (occurrence: None)
  Receive Date: 20060504
  Receipt Date: 20060421
  Transmission Date: 20061013
  Serious: Yes (Hospitalization)
  Sender: FDA-Public Use
  Company Number: HQWYE912509JUL03

PATIENT
  Age: 72 Year
  Sex: Female
  Weight: 54.89 kg

DRUGS (28)
  1. MYLOTARG [Suspect]
     Indication: ACUTE MYELOID LEUKAEMIA
     Dosage: 9 MG/M^2 1X PER 1 DAY INTRAVENOUS
     Route: 042
     Dates: start: 20030522, end: 20030522
  2. NORVASC [Concomitant]
  3. SOLU-CORTEF (HYDROCORTISON SODIUM SUCCINATE) [Concomitant]
  4. ACTIVASE [Concomitant]
  5. ALLEGRA [Concomitant]
  6. DIFLUCAN [Concomitant]
  7. MORPHINE SULFATE [Concomitant]
  8. PROTONIX [Concomitant]
  9. SERTRALINE [Concomitant]
  10. HEPARIN [Concomitant]
  11. ATIVAN [Concomitant]
  12. OXYCODONE (OXYCODONE) [Concomitant]
  13. LASIX [Concomitant]
  14. ACYCLOVIR [Concomitant]
  15. PREDNISONE TAB [Concomitant]
  16. CIPRO [Concomitant]
  17. ZOFRAN [Concomitant]
  18. DARVON [Concomitant]
  19. BENADRYL [Concomitant]
  20. AMITRIPTYLINE (AMITRIPTYLINE) [Concomitant]
  21. COLACE (DOCUSATE SODIUM) [Concomitant]
  22. DURAGESIC-100 [Concomitant]
  23. MORPHINE SULFATE [Concomitant]
  24. ALLOPURINOL [Concomitant]
  25. FOSAMAX [Concomitant]
  26. MAGNESIUM SULFATE [Concomitant]
  27. MAGNESIUM OXIDE (MAGNESIUM OXIDE) [Concomitant]
  28. POTASSIUM CHLORIDE [Concomitant]

REACTIONS (16)
  - ALANINE AMINOTRANSFERASE INCREASED [None]
  - ASPARTATE AMINOTRANSFERASE INCREASED [None]
  - ATRIAL FLUTTER [None]
  - BLOOD ALKALINE PHOSPHATASE INCREASED [None]
  - BLOOD UREA INCREASED [None]
  - BRADYCARDIA [None]
  - DIARRHOEA [None]
  - FEBRILE NEUTROPENIA [None]
  - HYPOKALAEMIA [None]
  - HYPOMAGNESAEMIA [None]
  - HYPOTENSION [None]
  - INFUSION RELATED REACTION [None]
  - PANCYTOPENIA [None]
  - RASH [None]
  - THERAPEUTIC AGENT TOXICITY [None]
  - WEIGHT INCREASED [None]
